FAERS Safety Report 5881969-5 (Version None)
Quarter: 2008Q3

REPORT INFORMATION
  Report Type: 
  Country: None (occurrence: None)
  Receive Date: 20080912
  Receipt Date: 20080718
  Transmission Date: 20090109
  Serious: No
  Sender: FDA-Public Use
  Company Number: US-ABBOTT-08P-163-0464137-00

PATIENT
  Sex: Female
  Weight: 53.118 kg

DRUGS (1)
  1. HUMIRA [Suspect]
     Indication: CROHN'S DISEASE
     Route: 058
     Dates: start: 20080622

REACTIONS (6)
  - DYSPHAGIA [None]
  - LYMPH NODE PAIN [None]
  - LYMPHADENOPATHY [None]
  - OROPHARYNGEAL PAIN [None]
  - RASH [None]
  - TONSILLAR HYPERTROPHY [None]
